FAERS Safety Report 15254852 (Version 1)
Quarter: 2018Q3

REPORT INFORMATION
  Report Type: Spontaneous
  Country: US (occurrence: US)
  Receive Date: 20180808
  Receipt Date: 20180808
  Transmission Date: 20181010
  Serious: No
  Sender: FDA-Public Use
  Company Number: US-MYLANLABS-2018M1058370

PATIENT
  Sex: Male
  Weight: 82 kg

DRUGS (1)
  1. PROCHLORPERAZINE MALEATE TABLETS, USP [Suspect]
     Active Substance: PROCHLORPERAZINE MALEATE
     Indication: NAUSEA
     Dosage: 1 TAB BY MOUTH 4X DAILY PRN
     Route: 048

REACTIONS (3)
  - Tongue discomfort [Recovering/Resolving]
  - Wrong technique in product usage process [Unknown]
  - Oral discomfort [Recovering/Resolving]
